FAERS Safety Report 10713519 (Version 2)
Quarter: 2015Q1

REPORT INFORMATION
  Report Type: Spontaneous
  Country: FR (occurrence: FR)
  Receive Date: 20150115
  Receipt Date: 20150311
  Transmission Date: 20150721
  Serious: Yes (Other)
  Sender: FDA-Public Use
  Company Number: FR-TEVA-534544ISR

PATIENT
  Age: 77 Year
  Sex: Female
  Weight: 86 kg

DRUGS (5)
  1. ESIDREX [Concomitant]
     Active Substance: HYDROCHLOROTHIAZIDE
     Dosage: .5 DOSAGE FORMS DAILY; LONG-STANDING TREATMENT
     Route: 048
  2. LAROXYL [Concomitant]
     Active Substance: AMITRIPTYLINE
     Indication: URINARY TRACT INFECTION
     Dosage: 10 GTT DAILY; LONG-STANDING TREATMENT
  3. LEVOTHYROX [Concomitant]
     Active Substance: LEVOTHYROXINE
     Dosage: 87 MICROGRAM DAILY; LONG-STANDING TREATMENT
     Route: 048
  4. ENALAPRIL 20 MG [Concomitant]
     Dosage: 1 DOSAGE FORMS DAILY; LONG-STANDING TREATMENT
     Route: 048
  5. COTRIMAXAZOLE RATIOPHARM 800 MG/160 MG [Suspect]
     Active Substance: SULFAMETHOXAZOLE\TRIMETHOPRIM
     Indication: URINARY TRACT INFECTION
     Dosage: 2 DOSAGE FORMS DAILY; SULFAMETHOXAZOLE W/TRIMETHOPRIM: 800 MG/160 MG
     Route: 048
     Dates: start: 20141229, end: 20150104

REACTIONS (9)
  - Dermatitis exfoliative [Not Recovered/Not Resolved]
  - Abdominal pain upper [Recovering/Resolving]
  - Urine output decreased [Not Recovered/Not Resolved]
  - Urticaria [Recovered/Resolved]
  - Pruritus [Recovered/Resolved]
  - Nausea [Recovering/Resolving]
  - Rash [Recovered/Resolved]
  - Skin plaque [Not Recovered/Not Resolved]
  - Diarrhoea haemorrhagic [Recovering/Resolving]

NARRATIVE: CASE EVENT DATE: 20141230
